FAERS Safety Report 18037807 (Version 2)
Quarter: 2021Q1

REPORT INFORMATION
  Report Type: Spontaneous
  Country: US (occurrence: US)
  Receive Date: 20200717
  Receipt Date: 20210304
  Transmission Date: 20210419
  Serious: No
  Sender: FDA-Public Use
  Company Number: US-ASTRAZENECA-2020SE87117

PATIENT
  Sex: Male
  Weight: 122.5 kg

DRUGS (1)
  1. BYDUREON BCISE [Suspect]
     Active Substance: EXENATIDE
     Indication: GLUCOSE TOLERANCE IMPAIRED
     Route: 058

REACTIONS (5)
  - Incorrect dose administered [Unknown]
  - Hypoacusis [Not Recovered/Not Resolved]
  - Product closure removal difficult [Unknown]
  - Injection site extravasation [Unknown]
  - Device leakage [Unknown]
